FAERS Safety Report 12578512 (Version 5)
Quarter: 2016Q3

REPORT INFORMATION
  Report Type: Spontaneous
  Country: US (occurrence: US)
  Receive Date: 20160721
  Receipt Date: 20160824
  Transmission Date: 20161109
  Serious: No
  Sender: FDA-Public Use
  Company Number: US-HORIZON-RAV-0141-2016

PATIENT
  Age: 28 Year
  Sex: Female

DRUGS (1)
  1. RAVICTI [Suspect]
     Active Substance: GLYCEROL PHENYLBUTYRATE
     Indication: UREA CYCLE ENZYME DEFICIENCY
     Dosage: 1.4 ML TID
     Dates: start: 20140307, end: 201510

REACTIONS (2)
  - Incorrect dose administered [Unknown]
  - Exposure during pregnancy [Unknown]
